FAERS Safety Report 8369275-0 (Version None)
Quarter: 2012Q2

REPORT INFORMATION
  Report Type: 
  Country: None (occurrence: None)
  Receive Date: 20120518
  Receipt Date: 20120514
  Transmission Date: 20120825
  Serious: Yes (Other)
  Sender: FDA-Public Use
  Company Number: PHHY2012JP041635

PATIENT

DRUGS (3)
  1. NORVASC [Concomitant]
  2. MYSTAN [Concomitant]
  3. TEGRETOL [Suspect]
     Indication: EPILEPSY

REACTIONS (1)
  - PRINZMETAL ANGINA [None]
